FAERS Safety Report 8511474-9 (Version None)
Quarter: 2012Q3

REPORT INFORMATION
  Report Type: 
  Country: None (occurrence: None)
  Receive Date: 20120716
  Receipt Date: 20120703
  Transmission Date: 20120928
  Serious: No
  Sender: FDA-Public Use
  Company Number: US-ASTRAZENECA-2012SE45613

PATIENT
  Age: 42 Year
  Sex: Male

DRUGS (6)
  1. SEROQUEL [Suspect]
     Indication: INSOMNIA
     Dosage: 150 MG DURING DAY AND 300 MG AT NIGHT
     Route: 048
  2. SEROQUEL [Suspect]
     Indication: SLEEP DISORDER
     Dosage: 150 MG DURING DAY AND 300 MG AT NIGHT
     Route: 048
  3. SEROQUEL [Suspect]
     Dosage: 150 MG DURING DAY AND 600 MG AT NIGHT
     Route: 048
  4. SEROQUEL [Suspect]
     Indication: BIPOLAR DISORDER
     Dosage: 150 MG DURING DAY AND 300 MG AT NIGHT
     Route: 048
  5. SEROQUEL [Suspect]
     Dosage: 150 MG DURING DAY AND 600 MG AT NIGHT
     Route: 048
  6. SEROQUEL [Suspect]
     Dosage: 150 MG DURING DAY AND 600 MG AT NIGHT
     Route: 048

REACTIONS (3)
  - MALAISE [None]
  - DRUG INEFFECTIVE [None]
  - HAEMATURIA [None]
